FAERS Safety Report 20016799 (Version 1)
Quarter: 2021Q4

REPORT INFORMATION
  Report Type: Spontaneous
  Country: US (occurrence: None)
  Receive Date: 20211105
  Receipt Date: 20211105
  Transmission Date: 20220303
  Serious: Yes (Other)
  Sender: FDA-Public Use
  Company Number: None

PATIENT
  Age: 37 Year

DRUGS (22)
  1. HIZENTRA [Suspect]
     Active Substance: HUMAN IMMUNOGLOBULIN G
     Indication: Immunodeficiency
     Dosage: FREQUENCY : WEEKLY;?
     Route: 058
     Dates: start: 20211011
  2. ALPRAZOLAM [Concomitant]
  3. BYSTOLIC [Concomitant]
  4. CHOLECALCIFEROL [Concomitant]
  5. CIPROFLOXACIN [Concomitant]
  6. CYCLOBENZAPRINE [Concomitant]
  7. DRISDOL [Concomitant]
  8. FERROUS FUMARATE [Concomitant]
  9. FOLTRIN [Concomitant]
  10. LANSOPRAZOLE [Concomitant]
     Active Substance: LANSOPRAZOLE
  11. LEVOTHYROXINE [Concomitant]
  12. LIOTHYRONINE [Concomitant]
  13. METOPROLOL SUCCINATE [Concomitant]
  14. ONDANSETRON [Concomitant]
  15. Orthocyclin [Concomitant]
  16. Percocet [Concomitant]
  17. Protonix [Concomitant]
  18. RIFAXIMIN [Concomitant]
  19. ROSUVASTATIN [Concomitant]
  20. Trulicy [Concomitant]
  21. Vitamin B12 [Concomitant]
  22. Zofran [Concomitant]

REACTIONS (4)
  - Pruritus [None]
  - Rash [None]
  - Arthralgia [None]
  - Recalled product [None]

NARRATIVE: CASE EVENT DATE: 20211028
